FAERS Safety Report 10030833 (Version 2)
Quarter: 2014Q1

REPORT INFORMATION
  Report Type: Spontaneous
  Country: US (occurrence: US)
  Receive Date: 20140323
  Receipt Date: 20140323
  Transmission Date: 20141002
  Serious: No
  Sender: FDA-Public Use
  Company Number: US-ALLERGAN-1315302US

PATIENT
  Age: 46 Year
  Sex: Female

DRUGS (5)
  1. LATISSE 0.03% [Suspect]
     Indication: HYPOTRICHOSIS
     Dosage: 3 GTT, UNK
     Route: 061
     Dates: start: 201306
  2. LATISSE 0.03% [Suspect]
     Dosage: 4 GTT, UNK
     Route: 047
  3. LATISSE 0.03% [Suspect]
     Dosage: 3 GTT, UNK
     Route: 061
  4. LATISSE 0.03% [Suspect]
     Dosage: 4 GTT, UNK
     Route: 061
  5. LIQUID TEARS [Concomitant]
     Indication: DRY EYE
     Dosage: UNK UNK, QID
     Route: 047

REACTIONS (4)
  - Blepharal pigmentation [Recovering/Resolving]
  - Incorrect dose administered [Unknown]
  - Drug ineffective [Unknown]
  - Ocular hyperaemia [Recovering/Resolving]
